FAERS Safety Report 11898345 (Version 1)
Quarter: 2016Q1

REPORT INFORMATION
  Report Type: Spontaneous
  Country: US (occurrence: None)
  Receive Date: 20160107
  Receipt Date: 20160107
  Transmission Date: 20160526
  Serious: Yes (Life-Threatening, Hospitalization, Disabling, Other)
  Sender: FDA-Public Use
  Company Number: None

PATIENT
  Age: 51 Year
  Sex: Female
  Weight: 81.65 kg

DRUGS (4)
  1. CITALOPRAM [Concomitant]
     Active Substance: CITALOPRAM HYDROBROMIDE
  2. SYNTHROID [Concomitant]
     Active Substance: LEVOTHYROXINE SODIUM
  3. CARVEDILOL. [Concomitant]
     Active Substance: CARVEDILOL
  4. LIPITOR [Suspect]
     Active Substance: ATORVASTATIN CALCIUM
     Indication: BLOOD TRIGLYCERIDES INCREASED
     Dosage: 1 PILL
     Route: 048
     Dates: start: 20140714, end: 20140718

REACTIONS (6)
  - Ischaemic hepatitis [None]
  - Hepatic failure [None]
  - Renal failure [None]
  - Encephalopathy [None]
  - Deafness neurosensory [None]
  - Unresponsive to stimuli [None]

NARRATIVE: CASE EVENT DATE: 20140719
